FAERS Safety Report 12358216 (Version 3)
Quarter: 2016Q2

REPORT INFORMATION
  Report Type: Spontaneous
  Country: SA (occurrence: SA)
  Receive Date: 20160512
  Receipt Date: 20160609
  Transmission Date: 20160815
  Serious: Yes (Hospitalization, Disabling, Other)
  Sender: FDA-Public Use
  Company Number: PHHY2016SA062382

PATIENT
  Sex: Female
  Weight: 85 kg

DRUGS (1)
  1. GILENYA [Suspect]
     Active Substance: FINGOLIMOD HYDROCHLORIDE
     Indication: RELAPSING-REMITTING MULTIPLE SCLEROSIS
     Dosage: 0.5 MG, QD
     Route: 048
     Dates: start: 2014

REACTIONS (9)
  - Asthenia [Unknown]
  - Hemiparesis [Unknown]
  - Hemianopia [Unknown]
  - Rebound effect [Unknown]
  - Central nervous system lesion [Unknown]
  - Sensory loss [Unknown]
  - Cognitive disorder [Unknown]
  - Multiple sclerosis relapse [Unknown]
  - Dysarthria [Unknown]
